FAERS Safety Report 20804001 (Version 2)
Quarter: 2022Q2

REPORT INFORMATION
  Report Type: Spontaneous
  Country: US (occurrence: US)
  Receive Date: 20220509
  Receipt Date: 20220601
  Transmission Date: 20220721
  Serious: No
  Sender: FDA-Public Use
  Company Number: US-Blueprint Medicines Corporation-SP-US-2022-001223

PATIENT
  Age: 29 Year
  Sex: Female

DRUGS (4)
  1. AYVAKIT [Suspect]
     Active Substance: AVAPRITINIB
     Indication: Gastrointestinal stromal tumour
     Dosage: TAKE 1 TABLET BY MOUTH EVERY OTHER DAY ALTERNATE WITH 200MG DOSE
     Route: 048
     Dates: start: 20190901
  2. AYVAKIT [Suspect]
     Active Substance: AVAPRITINIB
     Dosage: TAKE 1 TABLET BY MOUTH EVERY OTHER DAY ALTERNATE WITH 200MG DOSE
     Route: 048
     Dates: start: 20190901
  3. AYVAKIT [Suspect]
     Active Substance: AVAPRITINIB
     Dosage: TAKE 1 TABLET BY MOUTH EVERY OTHER DAY ALTERNATE WITH 300MG DOSE
     Route: 048
     Dates: start: 20211029
  4. AYVAKIT [Suspect]
     Active Substance: AVAPRITINIB
     Dosage: TAKE 1 TABLET BY MOUTH EVERY OTHER DAY ALTERNATE WITH 200MG DOSE
     Route: 048
     Dates: start: 20211029

REACTIONS (7)
  - Dry skin [Not Recovered/Not Resolved]
  - Sensitive skin [Not Recovered/Not Resolved]
  - Condition aggravated [Not Recovered/Not Resolved]
  - Photosensitivity reaction [Not Recovered/Not Resolved]
  - Skin discolouration [Not Recovered/Not Resolved]
  - Off label use [Not Recovered/Not Resolved]
  - Rash [Not Recovered/Not Resolved]

NARRATIVE: CASE EVENT DATE: 20190901
